FAERS Safety Report 7068757-1 (Version None)
Quarter: 2010Q4

REPORT INFORMATION
  Report Type: 
  Country: None (occurrence: None)
  Receive Date: 20101028
  Receipt Date: 20101022
  Transmission Date: 20110411
  Serious: Yes (Other)
  Sender: FDA-Public Use
  Company Number: US-PFIZER INC-2010130089

PATIENT
  Sex: Female
  Weight: 49.887 kg

DRUGS (4)
  1. CELEBREX [Suspect]
     Dosage: UNK
  2. PREDNISONE [Suspect]
     Indication: POLYMYALGIA RHEUMATICA
  3. VITAMIN D [Suspect]
  4. CALCIUM [Concomitant]

REACTIONS (11)
  - ACCIDENT [None]
  - BACK INJURY [None]
  - DRUG INEFFECTIVE [None]
  - FRACTURE [None]
  - INFLUENZA LIKE ILLNESS [None]
  - MALAISE [None]
  - MIGRAINE [None]
  - OSTEOPOROSIS [None]
  - PARATHYROID DISORDER [None]
  - POLYMYALGIA RHEUMATICA [None]
  - THYROID NEOPLASM [None]
